FAERS Safety Report 11375114 (Version 3)
Quarter: 2015Q4

REPORT INFORMATION
  Report Type: Report from Study
  Country: US (occurrence: US)
  Receive Date: 20150813
  Receipt Date: 20151012
  Transmission Date: 20160304
  Serious: Yes (Death)
  Sender: FDA-Public Use
  Company Number: PHEH2015US015426

PATIENT
  Age: 74 Year
  Sex: Male

DRUGS (1)
  1. GLEEVEC [Suspect]
     Active Substance: IMATINIB MESYLATE
     Indication: PRODUCT USED FOR UNKNOWN INDICATION
     Dosage: UNK
     Route: 065
     Dates: start: 20130104

REACTIONS (1)
  - Death [Fatal]

NARRATIVE: CASE EVENT DATE: 20150702
